FAERS Safety Report 13523984 (Version 2)
Quarter: 2017Q3

REPORT INFORMATION
  Report Type: Spontaneous
  Country: US (occurrence: US)
  Receive Date: 20170508
  Receipt Date: 20170810
  Transmission Date: 20171127
  Serious: No
  Sender: FDA-Public Use
  Company Number: US-VIFOR (INTERNATIONAL) INC.-VIT-2016-07696

PATIENT
  Age: 85 Year
  Sex: Female

DRUGS (12)
  1. VELTASSA [Suspect]
     Active Substance: PATIROMER
  2. ACETYLSALICYLIC ACID [Concomitant]
     Active Substance: ASPIRIN
  3. LATANOPROST. [Concomitant]
     Active Substance: LATANOPROST
  4. CLONIDINE. [Concomitant]
     Active Substance: CLONIDINE
  5. LOSARTAN. [Concomitant]
     Active Substance: LOSARTAN
  6. SIMVASTATIN. [Concomitant]
     Active Substance: SIMVASTATIN
  7. HYDRALAZINE [Concomitant]
     Active Substance: HYDRALAZINE HYDROCHLORIDE
  8. IRON [Concomitant]
     Active Substance: IRON
  9. VELTASSA [Suspect]
     Active Substance: PATIROMER
     Indication: HYPERKALAEMIA
     Route: 048
     Dates: start: 201610
  10. CARVEDILOL. [Concomitant]
     Active Substance: CARVEDILOL
  11. LANTUS [Concomitant]
     Active Substance: INSULIN GLARGINE
  12. TRIAMCINOLONE ACETONIDE/NYSTATIN [Concomitant]

REACTIONS (4)
  - Blood pressure abnormal [Unknown]
  - Diarrhoea [Unknown]
  - Inappropriate schedule of drug administration [Unknown]
  - Constipation [Not Recovered/Not Resolved]

NARRATIVE: CASE EVENT DATE: 201610
